FAERS Safety Report 11089503 (Version 1)
Quarter: 2015Q2

REPORT INFORMATION
  Report Type: Spontaneous
  Country: US (occurrence: US)
  Receive Date: 20150505
  Receipt Date: 20150505
  Transmission Date: 20150821
  Serious: Yes (Other)
  Sender: FDA-Public Use
  Company Number: US-AMGEN-USASP2015041746

PATIENT
  Sex: Male

DRUGS (1)
  1. NEULASTA [Suspect]
     Active Substance: PEGFILGRASTIM
     Indication: PRODUCT USED FOR UNKNOWN INDICATION
     Dosage: UNK
     Route: 065

REACTIONS (7)
  - Prostate cancer [Unknown]
  - Skin sensitisation [Unknown]
  - Device issue [Unknown]
  - Application site haemorrhage [Unknown]
  - Drug dose omission [Unknown]
  - Haemorrhagic diathesis [Unknown]
  - Metastases to bone [Unknown]
